FAERS Safety Report 26048686 (Version 1)
Quarter: 2025Q4

REPORT INFORMATION
  Report Type: Spontaneous
  Country: US (occurrence: US)
  Receive Date: 20251115
  Receipt Date: 20251115
  Transmission Date: 20260117
  Serious: No
  Sender: Aarkish Pharmaceuticals
  Company Number: US-Aarkish Pharmaceuticals NJ Inc.-2188597

PATIENT

DRUGS (1)
  1. VARENICLINE TARTRATE [Suspect]
     Active Substance: VARENICLINE TARTRATE
     Indication: Ex-tobacco user

REACTIONS (3)
  - Mood swings [Unknown]
  - Depression [Unknown]
  - Anger [Unknown]
